FAERS Safety Report 6102597-2 (Version None)
Quarter: 2009Q1

REPORT INFORMATION
  Report Type: 
  Country: None (occurrence: None)
  Receive Date: 20090304
  Receipt Date: 20080924
  Transmission Date: 20090719
  Serious: No
  Sender: FDA-Public Use
  Company Number: A0749045A

PATIENT
  Age: 82 Year
  Sex: Female

DRUGS (9)
  1. REQUIP [Suspect]
     Indication: RESTLESS LEGS SYNDROME
     Dosage: .5MG TWICE PER DAY
     Route: 048
     Dates: start: 20080201
  2. NEXIUM [Concomitant]
  3. DIOVAN [Concomitant]
  4. ASPIRIN [Concomitant]
  5. VYTORIN [Concomitant]
  6. ATIVAN [Concomitant]
  7. BUMEX [Concomitant]
     Dates: end: 20080914
  8. SPIRONOLACTONE [Concomitant]
     Dates: start: 20080914
  9. LASIX [Concomitant]
     Dates: start: 20080914

REACTIONS (5)
  - BLOOD SODIUM DECREASED [None]
  - DRUG INEFFECTIVE [None]
  - HEART RATE INCREASED [None]
  - MENTAL DISORDER [None]
  - PAIN IN EXTREMITY [None]
